FAERS Safety Report 8354391-X (Version None)
Quarter: 2012Q2

REPORT INFORMATION
  Report Type: 
  Country: None (occurrence: None)
  Receive Date: 20120511
  Receipt Date: 20120502
  Transmission Date: 20120825
  Serious: Yes (Hospitalization)
  Sender: FDA-Public Use
  Company Number: CH-ASTRAZENECA-2012SE28893

PATIENT
  Age: 48 Year
  Sex: Female

DRUGS (13)
  1. MYFORTIC [Suspect]
     Indication: ORGAN TRANSPLANT
     Route: 048
  2. ATOVAQUONE [Concomitant]
     Route: 048
  3. PROGRAF [Suspect]
     Indication: ORGAN TRANSPLANT
     Route: 048
     Dates: start: 20110701, end: 20120109
  4. PROGRAF [Suspect]
     Route: 048
     Dates: start: 20120113
  5. VALCYTE [Suspect]
     Indication: CYTOMEGALOVIRUS VIRAEMIA
     Route: 048
  6. NEXIUM [Suspect]
     Route: 048
  7. PROGRAF [Suspect]
     Route: 048
     Dates: start: 20120111
  8. DIFLUCAN [Suspect]
     Route: 048
     Dates: start: 20120103, end: 20120109
  9. PREDNISONE TAB [Concomitant]
     Route: 048
  10. ACETAMINOPHEN [Suspect]
     Route: 048
  11. AMILORIDE HCL AND HYDROCHLOROTHIAZIDE [Suspect]
     Indication: ESSENTIAL HYPERTENSION
     Route: 048
     Dates: end: 20120109
  12. BELOC [Concomitant]
     Route: 048
  13. CITALOPRAM HYDROBROMIDE [Concomitant]
     Route: 048
     Dates: start: 20120102, end: 20120108

REACTIONS (1)
  - RENAL FAILURE ACUTE [None]
